FAERS Safety Report 9160189 (Version 2)
Quarter: 2013Q2

REPORT INFORMATION
  Report Type: Spontaneous
  Country: US (occurrence: US)
  Receive Date: 20130313
  Receipt Date: 20130417
  Transmission Date: 20140414
  Serious: Yes (Other)
  Sender: FDA-Public Use
  Company Number: US-ELI_LILLY_AND_COMPANY-US201303001546

PATIENT
  Sex: Female
  Weight: 53.06 kg

DRUGS (15)
  1. ZYPREXA [Suspect]
     Indication: BIPOLAR DISORDER
     Dosage: 15 MG, EACH EVENING
     Route: 048
     Dates: start: 2012
  2. METHOTREXATE [Concomitant]
     Dosage: 1 DF, UNKNOWN
  3. ASPIRIN [Concomitant]
     Dosage: 81 MG, UNKNOWN
  4. CELEBREX [Concomitant]
     Dosage: 200 MG, UNKNOWN
     Route: 048
  5. LEUCOVORIN CALCIUM [Concomitant]
     Dosage: 5 MG, UNKNOWN
  6. DIAZEPAM [Concomitant]
     Dosage: 10 MG, UNKNOWN
  7. AMPHETAMINE SALTS [Concomitant]
     Dosage: 30 MG, UNKNOWN
  8. OMEPRAZOLE [Concomitant]
     Dosage: 40 MG, QD
     Route: 048
  9. NEUROTIN                           /00949202/ [Concomitant]
     Dosage: 600 MG, UNKNOWN
  10. AMBIEN [Concomitant]
     Dosage: 10 MG, EACH EVENING
     Route: 048
  11. LEVOTHYROXINE [Concomitant]
     Dosage: 25 DF, UNKNOWN
  12. ARAVA [Concomitant]
     Dosage: 20 MG, UNKNOWN
  13. CITRACAL [Concomitant]
     Dosage: 1 DF, UNKNOWN
     Route: 048
  14. CITALOPRAM [Concomitant]
     Dosage: 40 MG, UNKNOWN
  15. ORENCIA [Concomitant]
     Dosage: 1 DF, UNKNOWN
     Route: 042

REACTIONS (2)
  - Hip fracture [Recovering/Resolving]
  - Fall [Recovering/Resolving]
